FAERS Safety Report 8283420-7 (Version None)
Quarter: 2012Q2

REPORT INFORMATION
  Report Type: 
  Country: None (occurrence: None)
  Receive Date: 20120413
  Receipt Date: 20120403
  Transmission Date: 20120825
  Serious: Yes (Hospitalization, Disabling, Other)
  Sender: FDA-Public Use
  Company Number: US-ELI_LILLY_AND_COMPANY-US201204001628

PATIENT
  Sex: Female

DRUGS (3)
  1. SYMBICORT [Concomitant]
     Dosage: UNK
  2. HUMALOG [Suspect]
     Indication: BLOOD GLUCOSE INCREASED
     Dosage: UNK UNK, PRN
     Dates: start: 20090101
  3. PREDNISONE TAB [Concomitant]
     Indication: LUNG DISORDER
     Dosage: UNK

REACTIONS (10)
  - EXPIRED DRUG ADMINISTERED [None]
  - BLOOD GLUCOSE INCREASED [None]
  - LETHARGY [None]
  - CATARACT [None]
  - BLOOD GLUCOSE ABNORMAL [None]
  - BLINDNESS [None]
  - VISUAL IMPAIRMENT [None]
  - CARDIAC OPERATION [None]
  - DRUG INEFFECTIVE [None]
  - WRONG TECHNIQUE IN DRUG USAGE PROCESS [None]
